FAERS Safety Report 8513744-7 (Version None)
Quarter: 2012Q3

REPORT INFORMATION
  Report Type: 
  Country: None (occurrence: None)
  Receive Date: 20120705
  Receipt Date: 20120618
  Transmission Date: 20120928
  Serious: Yes (Hospitalization, Other)
  Sender: FDA-Public Use
  Company Number: CIP11002940

PATIENT
  Age: 88 Year
  Sex: Female
  Weight: 63.5 kg

DRUGS (4)
  1. ACTONEL [Suspect]
     Dosage: UNKNOWN DOSAGE / ONCE WEEKLY, ORAL
     Route: 048
  2. ALENDRONATE SODIUM [Suspect]
     Dosage: 70 MG, 1/WEEK, ORAL
     Route: 048
     Dates: start: 20091204
  3. FOSAMAX [Suspect]
     Dosage: UNK, 1/WEEK, ORAL
     Route: 048
  4. SYNTHROID [Concomitant]

REACTIONS (8)
  - FEMUR FRACTURE [None]
  - FALL [None]
  - ATYPICAL FEMUR FRACTURE [None]
  - PATHOLOGICAL FRACTURE [None]
  - STRESS FRACTURE [None]
  - PAIN IN EXTREMITY [None]
  - CONTUSION [None]
  - SCIATICA [None]
